FAERS Safety Report 8881109 (Version 2)
Quarter: 2015Q2

REPORT INFORMATION
  Report Type: Report from Study
  Country: US (occurrence: US)
  Receive Date: 20121031
  Receipt Date: 20150420
  Transmission Date: 20150821
  Serious: Yes (Death)
  Sender: FDA-Public Use
  Company Number: US-ROCHE-1128684

PATIENT
  Sex: Female
  Weight: 53.2 kg

DRUGS (13)
  1. FOSAMAX [Concomitant]
     Active Substance: ALENDRONATE SODIUM
  2. ALOXI [Concomitant]
     Active Substance: PALONOSETRON HYDROCHLORIDE
     Route: 065
  3. FAMOTIDINE. [Concomitant]
     Active Substance: FAMOTIDINE
     Route: 065
  4. BENADRYL [Concomitant]
     Active Substance: DIPHENHYDRAMINE HYDROCHLORIDE
     Route: 042
  5. NEXIUM [Concomitant]
     Active Substance: ESOMEPRAZOLE MAGNESIUM
  6. TAXOL [Concomitant]
     Active Substance: PACLITAXEL
     Route: 065
  7. DECADRON [Concomitant]
     Active Substance: DEXAMETHASONE
     Route: 065
  8. ARANESP [Concomitant]
     Active Substance: DARBEPOETIN ALFA
     Route: 065
  9. AVASTIN [Suspect]
     Active Substance: BEVACIZUMAB
     Indication: OVARIAN CANCER
     Dosage: 800 MG
     Route: 042
     Dates: start: 20060810, end: 20061116
  10. PAXIL (UNITED STATES) [Concomitant]
  11. AVASTIN [Suspect]
     Active Substance: BEVACIZUMAB
     Dosage: 810 MG
     Route: 042
  12. PACLITAXEL. [Concomitant]
     Active Substance: PACLITAXEL
  13. DOXIL [Concomitant]
     Active Substance: DOXORUBICIN HYDROCHLORIDE

REACTIONS (8)
  - Death [Fatal]
  - Epistaxis [Unknown]
  - White blood cell count decreased [Unknown]
  - Disease progression [Unknown]
  - Neutropenia [Unknown]
  - Discomfort [Unknown]
  - Off label use [Unknown]
  - Stomatitis [Unknown]
